FAERS Safety Report 20141029 (Version 4)
Quarter: 2022Q1

REPORT INFORMATION
  Report Type: Report from Study
  Country: US (occurrence: US)
  Receive Date: 20211202
  Receipt Date: 20220111
  Transmission Date: 20220423
  Serious: No
  Sender: FDA-Public Use
  Company Number: US-NOVARTISTESTPH-NVSC2021US275824

PATIENT
  Age: 68 Year
  Sex: Female

DRUGS (2)
  1. PIQRAY [Suspect]
     Active Substance: ALPELISIB
     Indication: Breast cancer
     Dosage: 300 MG, QD(TABLET)
     Route: 048
     Dates: start: 202111
  2. PIQRAY [Suspect]
     Active Substance: ALPELISIB
     Dosage: 300 MG, QD (OTHER DOSAGE: 1500X2)
     Route: 048
     Dates: start: 20211115, end: 20211203

REACTIONS (7)
  - Feeding disorder [Unknown]
  - Gait disturbance [Unknown]
  - Dehydration [Unknown]
  - Hypersensitivity [Unknown]
  - Rash pruritic [Unknown]
  - Pruritus [Unknown]
  - Fatigue [Unknown]

NARRATIVE: CASE EVENT DATE: 20211115
